FAERS Safety Report 6453516-0 (Version None)
Quarter: 2009Q4

REPORT INFORMATION
  Report Type: 
  Country: None (occurrence: None)
  Receive Date: 20091124
  Receipt Date: 20091103
  Transmission Date: 20100525
  Serious: Yes (Other)
  Sender: FDA-Public Use
  Company Number: CA-BAYER-200937286NA

PATIENT
  Sex: Female

DRUGS (1)
  1. YAZ [Suspect]
     Indication: CONTRACEPTION
     Route: 048
     Dates: start: 20090101, end: 20090101

REACTIONS (14)
  - ABDOMINAL DISTENSION [None]
  - ABDOMINAL PAIN LOWER [None]
  - ANXIETY [None]
  - BACK PAIN [None]
  - CHEST PAIN [None]
  - DIZZINESS [None]
  - DYSPNOEA [None]
  - HEADACHE [None]
  - INJURY [None]
  - MOOD SWINGS [None]
  - NAUSEA [None]
  - PAIN [None]
  - PAIN IN EXTREMITY [None]
  - VAGINAL HAEMORRHAGE [None]
